FAERS Safety Report 5396194-4 (Version None)
Quarter: 2007Q3

REPORT INFORMATION
  Report Type: 
  Country: None (occurrence: None)
  Receive Date: 20070725
  Receipt Date: 20070723
  Transmission Date: 20080115
  Serious: Yes (Life-Threatening, Hospitalization)
  Sender: FDA-Public Use
  Company Number: PHBS2007ES12212

PATIENT
  Age: 75 Year
  Sex: Male

DRUGS (8)
  1. TRILEPTAL [Suspect]
     Indication: EPILEPSY
     Dosage: 1200 MG/DAY
     Route: 048
     Dates: start: 20070606, end: 20070614
  2. CARDYL [Concomitant]
     Indication: MYOCARDIAL ISCHAEMIA
     Dosage: 40 MG/DAY
     Route: 048
     Dates: start: 20070606
  3. PLAVIX [Concomitant]
     Indication: MYOCARDIAL ISCHAEMIA
     Dosage: 75 MG/DAY
     Route: 048
     Dates: start: 20070606
  4. COROPRES [Concomitant]
     Indication: ESSENTIAL HYPERTENSION
     Route: 048
  5. ACUPREL [Concomitant]
     Indication: ESSENTIAL HYPERTENSION
     Route: 048
  6. AMERIDE [Concomitant]
     Indication: ESSENTIAL HYPERTENSION
     Route: 048
     Dates: end: 20070610
  7. PROSCAR [Concomitant]
     Indication: BENIGN PROSTATIC HYPERPLASIA
     Dosage: 5 MG/DAY
     Route: 048
  8. ALLOPURINOL [Concomitant]
     Dosage: 100 MG/DAY
     Route: 048
     Dates: end: 20070610

REACTIONS (9)
  - CEREBELLAR SYNDROME [None]
  - COORDINATION ABNORMAL [None]
  - DRUG TOXICITY [None]
  - DYSARTHRIA [None]
  - HYPONATRAEMIA [None]
  - NYSTAGMUS [None]
  - VERTIGO [None]
  - VESTIBULAR DISORDER [None]
  - VOMITING [None]
